FAERS Safety Report 8821512 (Version 1)
Quarter: 2012Q4

REPORT INFORMATION
  Report Type: 
  Country: CN (occurrence: CN)
  Receive Date: 20121002
  Receipt Date: 20121002
  Transmission Date: 20130627
  Serious: Yes (Hospitalization)
  Sender: FDA-Public Use
  Company Number: CN-PFIZER INC-2012242298

PATIENT
  Age: 3 Month
  Sex: Male

DRUGS (3)
  1. IBUPROFEN [Suspect]
     Indication: PYREXIA
     Dosage: 8 mg, 1x/day
     Route: 048
     Dates: start: 20090322, end: 20090322
  2. IBUPROFEN [Suspect]
     Dosage: 20 mg, 1x/day
     Route: 048
     Dates: start: 20090323, end: 20090323
  3. IBUPROFEN [Suspect]
     Dosage: 16 mg, 1x/day
     Route: 048
     Dates: start: 20090324, end: 20090324

REACTIONS (1)
  - Granulocytopenia [Recovering/Resolving]
